FAERS Safety Report 6235617-5 (Version None)
Quarter: 2009Q2

REPORT INFORMATION
  Report Type: 
  Country: None (occurrence: None)
  Receive Date: 20090616
  Receipt Date: 20090603
  Transmission Date: 20091009
  Serious: Yes (Death)
  Sender: FDA-Public Use
  Company Number: 2009PV000049

PATIENT
  Age: 49 Year
  Sex: Female

DRUGS (1)
  1. DEPOCYT [Suspect]
     Indication: METASTASES TO MENINGES
     Dosage: 50 MG; 1X; INTH
     Route: 055
     Dates: start: 20070601, end: 20070601

REACTIONS (6)
  - ALTERED STATE OF CONSCIOUSNESS [None]
  - ENCEPHALOPATHY [None]
  - HEADACHE [None]
  - HERNIA [None]
  - INFLAMMATION [None]
  - POST PROCEDURAL COMPLICATION [None]
